FAERS Safety Report 6897305-1 (Version None)
Quarter: 2010Q3

REPORT INFORMATION
  Report Type: 
  Country: None (occurrence: None)
  Receive Date: 20100802
  Receipt Date: 20070503
  Transmission Date: 20110219
  Serious: Yes (Other)
  Sender: FDA-Public Use
  Company Number: US-PFIZER INC-2007037033

PATIENT
  Sex: Female

DRUGS (1)
  1. LYRICA [Suspect]
     Indication: OFF LABEL USE

REACTIONS (7)
  - DRY EYE [None]
  - HEADACHE [None]
  - HYPERPHAGIA [None]
  - IMPAIRED DRIVING ABILITY [None]
  - OEDEMA PERIPHERAL [None]
  - SOMNOLENCE [None]
  - VISION BLURRED [None]
